FAERS Safety Report 21921563 (Version 5)
Quarter: 2023Q1

REPORT INFORMATION
  Report Type: Spontaneous
  Country: ES (occurrence: ES)
  Receive Date: 20230127
  Receipt Date: 20230309
  Transmission Date: 20230417
  Serious: Yes (Hospitalization, Other)
  Sender: FDA-Public Use
  Company Number: ES-DSJP-DSE-2023-102165

PATIENT
  Age: 66 Year
  Sex: Male

DRUGS (1)
  1. OLMESARTAN MEDOXOMIL [Suspect]
     Active Substance: OLMESARTAN MEDOXOMIL
     Indication: Hypertension
     Dosage: UNK
     Route: 065

REACTIONS (6)
  - Antiphospholipid syndrome [Recovered/Resolved]
  - Sprue-like enteropathy [Recovered/Resolved]
  - Peripheral embolism [Recovered/Resolved]
  - Autoimmune enteropathy [Recovered/Resolved]
  - Abnormal loss of weight [Recovered/Resolved]
  - Diarrhoea [Recovered/Resolved]
